FAERS Safety Report 16701648 (Version 2)
Quarter: 2019Q3

REPORT INFORMATION
  Report Type: Spontaneous
  Country: US (occurrence: US)
  Receive Date: 20190814
  Receipt Date: 20190820
  Transmission Date: 20191004
  Serious: Yes (Other)
  Sender: FDA-Public Use
  Company Number: US-009507513-1908USA004030

PATIENT
  Age: 14 Year
  Sex: Female

DRUGS (19)
  1. FOSCARNET SODIUM. [Concomitant]
     Active Substance: FOSCARNET SODIUM
     Indication: HUMAN HERPESVIRUS 6 INFECTION
     Dosage: 60 MILLIGRAM/KILOGRAM, Q8H
     Route: 042
  2. INFLIXIMAB [Concomitant]
     Active Substance: INFLIXIMAB
     Indication: IMMUNOSUPPRESSION
     Dosage: UNK
  3. GANCICLOVIR. [Concomitant]
     Active Substance: GANCICLOVIR
     Indication: CYTOMEGALOVIRUS VIRAEMIA
     Dosage: 5 MILLIGRAM/KILOGRAM, Q24H
     Route: 042
  4. PREVYMIS [Suspect]
     Active Substance: LETERMOVIR
     Indication: ANTIVIRAL TREATMENT
     Dosage: 480 MILLIGRAM, ONCE A DAY
     Route: 042
  5. PREVYMIS [Suspect]
     Active Substance: LETERMOVIR
     Indication: CYTOMEGALOVIRUS VIRAEMIA
  6. PREVYMIS [Suspect]
     Active Substance: LETERMOVIR
     Indication: ANTIVIRAL PROPHYLAXIS
     Dosage: 480 MILLIGRAM, ONCE DAILY
     Route: 048
  7. ALEMTUZUMAB [Concomitant]
     Active Substance: ALEMTUZUMAB
     Indication: IMMUNOSUPPRESSION
     Dosage: UNK
  8. GANCICLOVIR. [Concomitant]
     Active Substance: GANCICLOVIR
     Dosage: 10 MILLIGRAM/KILOGRAM, Q12H
     Route: 042
  9. PREVYMIS [Suspect]
     Active Substance: LETERMOVIR
     Dosage: 480 MILLIGRAM, ONCE DAILY
     Route: 048
  10. TACROLIMUS. [Concomitant]
     Active Substance: TACROLIMUS
     Indication: IMMUNOSUPPRESSION
     Dosage: UNK
  11. FOSCARNET SODIUM. [Concomitant]
     Active Substance: FOSCARNET SODIUM
     Indication: CYTOMEGALOVIRUS VIRAEMIA
     Dosage: 60 MILLIGRAM/KILOGRAM, QD
     Route: 042
  12. FOSCARNET SODIUM. [Concomitant]
     Active Substance: FOSCARNET SODIUM
     Dosage: 60 MILLIGRAM/KILOGRAM, Q24H
     Route: 042
  13. FOSCARNET SODIUM. [Concomitant]
     Active Substance: FOSCARNET SODIUM
     Dosage: 60 MILLIGRAM/KILOGRAM, Q8H
     Route: 042
  14. FOSCARNET SODIUM. [Concomitant]
     Active Substance: FOSCARNET SODIUM
     Dosage: 60 MILLIGRAM/KILOGRAM, Q8H
     Route: 042
  15. GANCICLOVIR. [Concomitant]
     Active Substance: GANCICLOVIR
     Dosage: 5 MILLIGRAM/KILOGRAM, Q12H
     Route: 042
  16. GANCICLOVIR. [Concomitant]
     Active Substance: GANCICLOVIR
     Dosage: 7.5 MILLIGRAM/KILOGRAM, Q12H
     Route: 042
  17. FOSCARNET SODIUM. [Concomitant]
     Active Substance: FOSCARNET SODIUM
     Dosage: 60 MILLIGRAM/KILOGRAM, Q12H
     Route: 042
  18. METHYLPREDNISOLONE. [Concomitant]
     Active Substance: METHYLPREDNISOLONE
     Indication: GRAFT VERSUS HOST DISEASE IN SKIN
     Dosage: 1-2 MG/KG PER DAY, 8-WEEK COURSE
  19. BUDESONIDE. [Concomitant]
     Active Substance: BUDESONIDE
     Indication: IMMUNOSUPPRESSION
     Dosage: UNK

REACTIONS (2)
  - Pathogen resistance [Unknown]
  - Off label use [Unknown]
